FAERS Safety Report 12885715 (Version 1)
Quarter: 2016Q4

REPORT INFORMATION
  Report Type: Spontaneous
  Country: US (occurrence: US)
  Receive Date: 20161026
  Receipt Date: 20161026
  Transmission Date: 20170207
  Serious: Yes (Hospitalization)
  Sender: FDA-Public Use
  Company Number: US-SA-2016SA194302

PATIENT
  Age: 63 Year
  Sex: Female

DRUGS (1)
  1. PRALUENT [Suspect]
     Active Substance: ALIROCUMAB
     Route: 058
     Dates: start: 20160907

REACTIONS (5)
  - Bronchiectasis [Unknown]
  - Cough [Unknown]
  - Chest discomfort [Unknown]
  - Nausea [Unknown]
  - Fatigue [Unknown]
